FAERS Safety Report 9415358 (Version 3)
Quarter: 2013Q3

REPORT INFORMATION
  Report Type: Report from Study
  Country: JP (occurrence: JP)
  Receive Date: 20130723
  Receipt Date: 20130729
  Transmission Date: 20140515
  Serious: Yes (Hospitalization)
  Sender: FDA-Public Use
  Company Number: JP-MERCK-1307JPN011888

PATIENT
  Age: 50 Year
  Sex: Female
  Weight: 44.9 kg

DRUGS (25)
  1. VORINOSTAT [Suspect]
     Indication: B-CELL LYMPHOMA
     Dosage: 200 MG, BID ON DAYS 1-14, FOLLOWED BY 7 DAY REST, CYCLE 1 AND CYCLE 2
     Route: 048
     Dates: start: 20090724, end: 20090828
  2. VORINOSTAT [Suspect]
     Dosage: 300 MG, CYCLE 3 MK 0683 100MG AND 200MG PER DAY
     Route: 048
     Dates: start: 20090910, end: 20090923
  3. VORINOSTAT [Suspect]
     Dosage: 200 MG, BID ON DAYS 1-14, FOLLOWED BY 7 DAY REST, CYCLE 4 TO CYCLE 19
     Route: 048
     Dates: start: 20091003, end: 20100910
  4. VORINOSTAT [Suspect]
     Dosage: 300 MG, CYCLE 20 MK 0683 100MG AND 200MG PER DAY
     Route: 048
     Dates: start: 20100918, end: 20101001
  5. VORINOSTAT [Suspect]
     Dosage: 200 MG, BID CYCLE 21
     Route: 048
     Dates: start: 20101009, end: 20101020
  6. VORINOSTAT [Suspect]
     Dosage: 300 MG, CYCLE 22 TO CYCLE 25 MK 0683 100MG AND 200MG PER DAY ON DAYS 1-14, FOLLOWED BY 7 DAY REST
     Route: 048
     Dates: start: 20101120, end: 20110201
  7. VORINOSTAT [Suspect]
     Dosage: 300 MG, CYCLE 26 MK 0683 100MG AND 200MG PER DAY
     Route: 048
     Dates: start: 20110219, end: 20110304
  8. VORINOSTAT [Suspect]
     Dosage: 100 MG, BID ON DAYS 1-14, FOLLOWED BY 7 DAY REST, CYCLE 27
     Route: 048
     Dates: start: 20110319, end: 20110401
  9. VORINOSTAT [Suspect]
     Dosage: 300 MG, CYCLE 28 TO CYCLE 47 MK 0683 100MG AND 200MG PER DAY ON DAYS 1-14, FOLLOWED BY 7 DAY REST,
     Route: 048
     Dates: start: 20110409, end: 20120601
  10. VORINOSTAT [Suspect]
     Dosage: 100 MG, BID ON DAYS 1-14, FOLLOWED BY 7 DAY REST, CYCLE 48
     Route: 048
     Dates: start: 20120609, end: 20120622
  11. VORINOSTAT [Suspect]
     Dosage: 300 MG, CYCLE 49 MK 0683 100MG AND 200MG PER DAY
     Route: 048
     Dates: start: 20120630, end: 20120712
  12. VORINOSTAT [Suspect]
     Dosage: 200MG
     Route: 048
     Dates: start: 20120713, end: 20120713
  13. VORINOSTAT [Suspect]
     Dosage: 300 MG,CYCLE 50 MK 0683 100MG AND 200MG PER DAY
     Route: 048
     Dates: start: 20120728, end: 20120810
  14. VORINOSTAT [Suspect]
     Dosage: 100 MG, BID ON DAYS 1-14, FOLLOWED BY 7 DAY REST, CYCLE 51 TO CYCLE 55
     Route: 048
     Dates: start: 20120818, end: 20121123
  15. VORINOSTAT [Suspect]
     Dosage: 300 MG, CYCLE 56 MK 0683 100MG AND 200MG PER DAY
     Route: 048
     Dates: start: 20121201, end: 20121214
  16. VORINOSTAT [Suspect]
     Dosage: 100 MG, BID CYCLE 57
     Route: 048
     Dates: start: 20121222, end: 20130104
  17. VORINOSTAT [Suspect]
     Dosage: 300 MG,CYCLE 58 TO CYCLE 69 MK 0683 100MG AND 200MG PER DAYON DAYS 1-14, FOLLOWED BY 7 DAY REST
     Route: 048
     Dates: start: 20130112, end: 20130215
  18. SELOKEN [Concomitant]
     Indication: SUPRAVENTRICULAR EXTRASYSTOLES
     Dosage: 20 MG, BID
     Route: 048
  19. SOLANAX [Concomitant]
     Indication: DEPRESSION
     Dosage: TOTAL DAILY DOSE 1.2 MG
     Route: 048
  20. TENORMIN [Concomitant]
     Indication: SUPRAVENTRICULAR EXTRASYSTOLES
     Dosage: 25 MG, QD
     Route: 048
  21. LENDORMIN [Concomitant]
     Indication: INSOMNIA
     Dosage: 0.25 MG, QD
     Route: 048
  22. GASTER [Concomitant]
     Indication: GASTRITIS PROPHYLAXIS
     Dosage: 20 MG, QD
     Route: 048
  23. ADETPHOS [Concomitant]
     Indication: DIZZINESS
     Dosage: TOTAL DAILY DOSE 180MG
     Route: 048
  24. MERISLON [Concomitant]
     Indication: DIZZINESS
     Dosage: TOTAL DAILY DOSE 18MG
     Route: 048
  25. NEUQUINON [Concomitant]
     Indication: SUPRAVENTRICULAR EXTRASYSTOLES
     Dosage: 10 MG, TID
     Route: 048
     Dates: start: 20100330

REACTIONS (1)
  - Cervical dysplasia [Not Recovered/Not Resolved]
